FAERS Safety Report 24327773 (Version 1)
Quarter: 2024Q3

REPORT INFORMATION
  Report Type: Spontaneous
  Country: CA (occurrence: None)
  Receive Date: 20240917
  Receipt Date: 20240917
  Transmission Date: 20241016
  Serious: Yes (Life-Threatening, Hospitalization, Other)
  Sender: ORION
  Company Number: CA-PFIZER INC-202400256229

PATIENT
  Age: 4 Year
  Sex: Male

DRUGS (2)
  1. METHOTREXATE [Suspect]
     Active Substance: METHOTREXATE
     Indication: Acute lymphocytic leukaemia
  2. MERCAPTOPURINE [Suspect]
     Active Substance: MERCAPTOPURINE
     Indication: Product used for unknown indication

REACTIONS (7)
  - Cough [Recovered/Resolved]
  - Ear pain [Recovered/Resolved]
  - Neutropenia [Recovered/Resolved]
  - Otitis media acute [Recovered/Resolved]
  - Pyrexia [Recovered/Resolved]
  - Rhinorrhoea [Recovered/Resolved]
  - SARS-CoV-2 test positive [Recovered/Resolved]
